FAERS Safety Report 7467379-8 (Version None)
Quarter: 2011Q2

REPORT INFORMATION
  Report Type: 
  Country: None (occurrence: None)
  Receive Date: 20110509
  Receipt Date: 20080326
  Transmission Date: 20111010
  Serious: Yes (Death, Hospitalization, Other)
  Sender: FDA-Public Use
  Company Number: US-BAYER-200818316NA

PATIENT
  Age: 86 Year
  Sex: Male
  Weight: 76.19 kg

DRUGS (14)
  1. PROTAMINE [Concomitant]
     Dosage: UNK
     Route: 042
     Dates: start: 20060102
  2. DOBUTAMINE HYDROCHLORIDE [Concomitant]
     Route: 042
  3. TRASYLOL [Suspect]
     Indication: CORONARY ARTERY BYPASS
  4. BENICAR [Concomitant]
     Dosage: 20 MG, QD
     Route: 048
  5. GLYBURIDE [Concomitant]
     Dosage: 5 MG, QD
     Route: 048
  6. NITROGLYCERIN [Concomitant]
     Dosage: UNK
     Route: 042
     Dates: start: 20060102
  7. INSULIN INJECTION [Concomitant]
     Dosage: UNK
     Route: 042
     Dates: start: 20060102
  8. METFORMIN [Concomitant]
     Indication: DIABETES MELLITUS
     Dosage: 500 MG, BID
     Route: 048
  9. VYTORIN [Concomitant]
     Dosage: 10/20
     Route: 048
  10. HEPARIN [Concomitant]
     Dosage: 30000 U, UNK
     Route: 042
     Dates: start: 20060102
  11. TRASYLOL [Suspect]
     Indication: INTRA-AORTIC BALLOON PLACEMENT
     Dosage: PUMP PRIME 200 ML
     Route: 042
     Dates: start: 20060102, end: 20060102
  12. DIGOXIN [Concomitant]
     Dosage: 125 MCG/24HR, UNK
     Route: 048
  13. DILTIA [Concomitant]
     Dosage: 240 MG, QD
     Route: 048
  14. LASIX [Concomitant]
     Dosage: 40 MG, UNK
     Dates: start: 20060102

REACTIONS (9)
  - EMOTIONAL DISTRESS [None]
  - FEAR OF DEATH [None]
  - ANHEDONIA [None]
  - DEATH [None]
  - INJURY [None]
  - RENAL INJURY [None]
  - ACTIVITIES OF DAILY LIVING IMPAIRED [None]
  - PAIN [None]
  - RENAL FAILURE [None]
